FAERS Safety Report 5940933-8 (Version None)
Quarter: 2008Q4

REPORT INFORMATION
  Report Type: 
  Country: None (occurrence: None)
  Receive Date: 20081104
  Receipt Date: 20081024
  Transmission Date: 20090506
  Serious: Yes (Other)
  Sender: FDA-Public Use
  Company Number: PHHY2008BR14889

PATIENT
  Sex: Female
  Weight: 64 kg

DRUGS (3)
  1. GALVUS MET COMBIPACK [Suspect]
     Indication: TYPE 2 DIABETES MELLITUS
     Dosage: (0/50 MG/BID
     Route: 048
     Dates: start: 20080715
  2. ENALAPRIL MALEATE [Concomitant]
     Indication: HYPOTHYROIDISM
  3. PURAN T4 [Concomitant]
     Indication: HYPOTHYROIDISM
     Dosage: 100 MG, QD
     Route: 048

REACTIONS (5)
  - ASTHENIA [None]
  - BLOOD GLUCOSE INCREASED [None]
  - DIZZINESS [None]
  - DRUG INEFFECTIVE [None]
  - GLYCOSYLATED HAEMOGLOBIN INCREASED [None]
